FAERS Safety Report 8524352-6 (Version None)
Quarter: 2012Q3

REPORT INFORMATION
  Report Type: 
  Country: None (occurrence: None)
  Receive Date: 20120720
  Receipt Date: 20120709
  Transmission Date: 20120928
  Serious: Yes (Life-Threatening, Hospitalization)
  Sender: FDA-Public Use
  Company Number: JP-PFIZER INC-2011010579

PATIENT
  Age: 66 Year
  Sex: Male

DRUGS (43)
  1. ADRIAMYCIN PFS [Suspect]
     Dosage: 40 MG/M2, UNK
     Route: 041
     Dates: start: 20101222, end: 20101222
  2. ZOVIRAX [Suspect]
     Dosage: UNK
     Dates: start: 20110630, end: 20110708
  3. ADRIAMYCIN PFS [Suspect]
     Dosage: 30 MG/M2, UNK
     Route: 041
     Dates: start: 20101014, end: 20101014
  4. ALLOPURINOL [Suspect]
     Dosage: 100 MG, 3X/DAY
     Route: 048
     Dates: start: 20110705, end: 20110719
  5. ADRIAMYCIN PFS [Suspect]
     Dosage: 30 MG/M2, UNK
     Route: 041
     Dates: start: 20101124, end: 20101124
  6. ADRIAMYCIN PFS [Suspect]
     Dosage: 30 MG/M2, UNK
     Route: 041
     Dates: start: 20101229, end: 20101229
  7. VANCOMYCIN [Suspect]
     Dosage: 0.5 G, 2X/DAY
     Route: 041
     Dates: start: 20110107, end: 20110117
  8. CYMERIN [Suspect]
     Indication: ADULT T-CELL LYMPHOMA/LEUKAEMIA
     Dosage: 60 MG/M2, UNK
     Route: 041
     Dates: start: 20101014, end: 20101229
  9. CARBOPLATIN [Suspect]
     Indication: ADULT T-CELL LYMPHOMA/LEUKAEMIA
     Dosage: 250 MG/M2, UNK
     Route: 041
     Dates: start: 20101026, end: 20101208
  10. SULFAMETHOXAZOLE AND TRIMETHOPRIM [Suspect]
     Dosage: 1 DF, 1X/DAY
     Route: 048
     Dates: start: 20110715
  11. PANTOSIN [Suspect]
     Indication: CONSTIPATION
     Dosage: UNK
     Route: 048
     Dates: start: 20110107, end: 20110110
  12. VFEND [Concomitant]
     Dosage: 400 MG, 2X/DAY
     Route: 041
     Dates: start: 20110704, end: 20110718
  13. ADRIAMYCIN PFS [Suspect]
     Dosage: 40 MG/M2, UNK
     Route: 041
     Dates: start: 20101116, end: 20101116
  14. METHOTREXATE SODIUM [Suspect]
     Indication: ADULT T-CELL LYMPHOMA/LEUKAEMIA
     Dosage: 15 MG, DAILY
     Dates: start: 20101118, end: 20101118
  15. KW-0761 [Suspect]
     Indication: ADULT T-CELL LYMPHOMA/LEUKAEMIA
     Dosage: 1 MG/KG, UNK
     Route: 041
     Dates: start: 20101008, end: 20101221
  16. LANSOPRAZOLE [Suspect]
     Dosage: 15 MG, 1X/DAY
     Route: 048
     Dates: start: 20110526, end: 20110719
  17. ALLOPURINOL [Suspect]
     Indication: HYPERURICAEMIA
     Dosage: 100 MG, 1X/DAY
     Route: 048
     Dates: end: 20110120
  18. LYRICA [Suspect]
     Indication: PAIN
     Dosage: 75 MG, 1X/DAY
     Route: 048
     Dates: start: 20110629, end: 20110719
  19. SULFAMETHOXAZOLE AND TRIMETHOPRIM [Suspect]
     Indication: ANTIFUNGAL PROPHYLAXIS
     Dosage: 1 DF, 1X/DAY
     Route: 048
     Dates: end: 20110128
  20. FENTANYL [Suspect]
     Indication: STOMATITIS
     Dosage: UNK
     Route: 041
     Dates: start: 20110102, end: 20110119
  21. MAGMITT [Suspect]
     Indication: CONSTIPATION
     Dosage: UNK
     Route: 048
     Dates: start: 20110107, end: 20110110
  22. TARGOCID [Concomitant]
     Dosage: 400 MG, 2X/DAY
     Route: 041
     Dates: start: 20110706, end: 20110714
  23. ADRIAMYCIN PFS [Suspect]
     Indication: ADULT T-CELL LYMPHOMA/LEUKAEMIA
     Dosage: 40 MG/M2, UNK
     Route: 041
     Dates: start: 20101007, end: 20101007
  24. DIFLUCAN [Suspect]
     Indication: ANTIFUNGAL PROPHYLAXIS
     Dosage: 100 MG, 1X/DAY
     Route: 048
     Dates: end: 20110111
  25. PREDNISOLONE [Suspect]
     Indication: ADULT T-CELL LYMPHOMA/LEUKAEMIA
     Dosage: 40 MG/M2, UNK
     Route: 048
     Dates: start: 20101007, end: 20101229
  26. ZOVIRAX [Suspect]
     Indication: PROPHYLAXIS
     Dosage: 200 MG, 1X/DAY
     Route: 048
     Dates: end: 20110128
  27. ZOVIRAX [Suspect]
     Dosage: 200 MG, 1X/DAY
     Route: 048
     Dates: start: 20110712, end: 20110719
  28. LIPIDIL [Suspect]
     Indication: HYPERLIPIDAEMIA
     Dosage: 100 DF, 1X/DAY
     Route: 048
     Dates: end: 20110126
  29. MEROPENEM [Suspect]
     Indication: PNEUMONIA
     Dosage: 0.5 G, 2X/DAY
     Route: 041
     Dates: start: 20110107, end: 20110124
  30. BARACLUDE [Suspect]
     Indication: HEPATITIS B
     Dosage: 0.5 MG, 1/2DAY
     Route: 048
     Dates: start: 20100629, end: 20110719
  31. SLOW-K [Concomitant]
     Dosage: 600 MG, 2X/DAY
     Route: 048
     Dates: start: 20110630, end: 20110724
  32. AMLODIPINE [Suspect]
     Indication: HYPERTENSION
     Dosage: 5 MG, 1X/DAY
     Route: 048
     Dates: start: 20101008, end: 20110217
  33. ONCOVIN [Suspect]
     Indication: ADULT T-CELL LYMPHOMA/LEUKAEMIA
     Dosage: 1 MG/M2, UNK
     Route: 041
     Dates: start: 20101007, end: 20101222
  34. ETOPOSIDE [Suspect]
     Indication: ADULT T-CELL LYMPHOMA/LEUKAEMIA
     Dosage: 100 MG/M2, 3X/DAY
     Route: 041
     Dates: start: 20101026, end: 20101208
  35. CEFAZOLIN SODIUM [Suspect]
     Indication: PROCTITIS
     Dosage: UNK
     Route: 048
     Dates: start: 20101022, end: 20110217
  36. DIFLUCAN [Suspect]
     Dosage: UNK
     Dates: start: 20110119, end: 20110128
  37. CYCLOPHOSPHAMIDE [Suspect]
     Indication: ADULT T-CELL LYMPHOMA/LEUKAEMIA
     Dosage: 350 MG/M2, UNK
     Route: 041
     Dates: start: 20101007, end: 20101222
  38. FILDESIN [Suspect]
     Indication: ADULT T-CELL LYMPHOMA/LEUKAEMIA
     Dosage: 2.4 MG/M2, UNK
     Route: 041
     Dates: start: 20101026, end: 20101208
  39. CYTARABINE [Suspect]
     Indication: ADULT T-CELL LYMPHOMA/LEUKAEMIA
     Dosage: 40 MG, DAILY
     Dates: start: 20101118, end: 20101118
  40. PREDNISOLONE [Suspect]
     Indication: ADULT T-CELL LYMPHOMA/LEUKAEMIA
     Dosage: 10 MG, DAILY
     Dates: start: 20101118, end: 20101118
  41. LANSOPRAZOLE [Suspect]
     Indication: GASTROOESOPHAGEAL REFLUX DISEASE
     Dosage: 15 MG, 1X/DAY
     Route: 048
     Dates: end: 20110217
  42. MEROPENEM [Suspect]
     Dosage: 1 G, 3X/DAY
     Route: 041
     Dates: start: 20110704, end: 20110715
  43. CIPROFLOXACIN HCL [Concomitant]
     Dosage: 200 MG, 3X/DAY
     Route: 048
     Dates: start: 20110715, end: 20110718

REACTIONS (2)
  - PNEUMONIA [None]
  - INTERSTITIAL LUNG DISEASE [None]
